FAERS Safety Report 11681544 (Version 1)
Quarter: 2015Q4

REPORT INFORMATION
  Report Type: Spontaneous
  Country: US (occurrence: None)
  Receive Date: 20151028
  Receipt Date: 20151028
  Transmission Date: 20160304
  Serious: No
  Sender: FDA-Public Use
  Company Number: None

PATIENT

DRUGS (1)
  1. CHOLESTYRAMINE FOR ORAL SUSPENSION USP PAR PHARMACEUTICAL [Suspect]
     Active Substance: CHOLESTYRAMINE
     Indication: BLOOD CHOLESTEROL
     Dosage: 9 GRAMS?1 SCOOPFUL?1 DAILY ?MOUTH
     Route: 048
     Dates: start: 20150316, end: 20151010

REACTIONS (2)
  - Tooth fracture [None]
  - Tooth discolouration [None]
